FAERS Safety Report 9132069 (Version 1)
Quarter: 2013Q1

REPORT INFORMATION
  Report Type: Spontaneous
  Country: US (occurrence: US)
  Receive Date: 20130301
  Receipt Date: 20130301
  Transmission Date: 20140127
  Serious: Yes (Other)
  Sender: FDA-Public Use
  Company Number: US-BAYER-2013-026306

PATIENT
  Age: 90 Year
  Sex: Female
  Weight: 68.03 kg

DRUGS (1)
  1. BAYER GENUINE ASPIRIN ORIGINAL STRENGTH [Suspect]
     Dosage: 12 DF, UNK
     Route: 048
     Dates: start: 1993, end: 1993

REACTIONS (1)
  - Ulcer haemorrhage [Recovered/Resolved]
